FAERS Safety Report 9292725 (Version 7)
Quarter: 2014Q1

REPORT INFORMATION
  Report Type: Spontaneous
  Country: FR (occurrence: FR)
  Receive Date: 20130516
  Receipt Date: 20140114
  Transmission Date: 20141002
  Serious: Yes (Other)
  Sender: FDA-Public Use
  Company Number: FR-TEVA-391829ISR

PATIENT
  Age: 56 Year
  Sex: Female

DRUGS (3)
  1. COPAXONE [Suspect]
     Indication: MULTIPLE SCLEROSIS
     Dosage: WITH AN AUTOJECT
     Route: 058
     Dates: start: 201105
  2. LAROXYL [Concomitant]
     Indication: NEURALGIA
     Dosage: 25 GTT DAILY;
     Dates: start: 2012
  3. PROTHIADEN [Concomitant]

REACTIONS (21)
  - Syncope [Recovered/Resolved]
  - Feeling abnormal [Recovered/Resolved]
  - Multiple sclerosis relapse [Unknown]
  - Injection site atrophy [Unknown]
  - Injection site induration [Unknown]
  - Lymphadenopathy [Unknown]
  - Pain in extremity [Unknown]
  - Paraesthesia [Unknown]
  - Injection site nodule [Unknown]
  - Injection site pruritus [Unknown]
  - Injection site warmth [Unknown]
  - Injection site erythema [Unknown]
  - Palpitations [Recovered/Resolved]
  - Hot flush [Recovered/Resolved]
  - Chest discomfort [Recovered/Resolved]
  - Vomiting [Unknown]
  - Fatigue [Unknown]
  - Injection site pain [Unknown]
  - Injection site pain [Unknown]
  - Wrong technique in drug usage process [Unknown]
  - Hyperhidrosis [Unknown]
